FAERS Safety Report 20140136 (Version 1)
Quarter: 2021Q4

REPORT INFORMATION
  Report Type: Report from Study
  Country: IT (occurrence: IT)
  Receive Date: 20211202
  Receipt Date: 20211202
  Transmission Date: 20220303
  Serious: Yes (Other)
  Sender: FDA-Public Use
  Company Number: None

PATIENT
  Age: 92 Year
  Sex: Male

DRUGS (9)
  1. IRBESARTAN [Suspect]
     Active Substance: IRBESARTAN
     Indication: Hypertension
     Dosage: 150 MG
     Route: 048
     Dates: start: 20210101, end: 20210816
  2. SILODOSIN [Concomitant]
     Active Substance: SILODOSIN
     Dosage: 8 MG
  3. ESOMEPRAZOLE SODIUM [Concomitant]
     Active Substance: ESOMEPRAZOLE SODIUM
  4. ATORVASTATIN [Concomitant]
     Active Substance: ATORVASTATIN
     Dosage: 20 MG
  5. AVODART [Concomitant]
     Active Substance: DUTASTERIDE
     Dosage: 0.5 MG
  6. PAROXETINE [Concomitant]
     Active Substance: PAROXETINE
  7. ASPIRIN [Concomitant]
     Active Substance: ASPIRIN
  8. CIPRALEX [Concomitant]
     Active Substance: ESCITALOPRAM OXALATE
     Dosage: 10 MG
  9. AMIODARONE [Concomitant]
     Active Substance: AMIODARONE
     Dosage: 1 DF

REACTIONS (2)
  - Renal failure [Recovering/Resolving]
  - Hypotension [Recovering/Resolving]

NARRATIVE: CASE EVENT DATE: 20210501
